FAERS Safety Report 18496024 (Version 1)
Quarter: 2020Q4

REPORT INFORMATION
  Report Type: Spontaneous
  Country: US (occurrence: US)
  Receive Date: 20201112
  Receipt Date: 20201112
  Transmission Date: 20210114
  Serious: Yes (Other)
  Sender: FDA-Public Use
  Company Number: None

PATIENT
  Age: 76 Year
  Sex: Male

DRUGS (2)
  1. CLOSYS [Suspect]
     Active Substance: SODIUM FLUORIDE
     Indication: DENTAL DISORDER PROPHYLAXIS
     Route: 048
  2. CLOSYS FLUORIDE RINSE [Suspect]
     Active Substance: SODIUM FLUORIDE
     Route: 048

REACTIONS (2)
  - Blister [None]
  - Pemphigoid [None]

NARRATIVE: CASE EVENT DATE: 20200915
